FAERS Safety Report 4502628-7 (Version None)
Quarter: 2004Q4

REPORT INFORMATION
  Report Type: 
  Country: None (occurrence: None)
  Receive Date: 20041110
  Receipt Date: 20041028
  Transmission Date: 20050328
  Serious: Yes (Hospitalization)
  Sender: FDA-Public Use
  Company Number: A01200405395

PATIENT
  Age: 60 Year
  Sex: Female

DRUGS (1)
  1. ELOXATIN [Suspect]
     Indication: RECTAL NEOPLASM
     Dosage: 195 MG OTHER
     Route: 042
     Dates: start: 20040614, end: 20040614

REACTIONS (6)
  - ANGIONEUROTIC OEDEMA [None]
  - DYSPNOEA [None]
  - HYPERSENSITIVITY [None]
  - LARYNGOSPASM [None]
  - MALAISE [None]
  - STRIDOR [None]
